FAERS Safety Report 9689129 (Version 1)
Quarter: 2013Q4

REPORT INFORMATION
  Report Type: Spontaneous
  Country: FR (occurrence: FR)
  Receive Date: 20131114
  Receipt Date: 20131114
  Transmission Date: 20140711
  Serious: Yes (Life-Threatening, Hospitalization, Disabling, Congenital Anomaly)
  Sender: FDA-Public Use
  Company Number: FR-BRISTOL-MYERS SQUIBB COMPANY-19806462

PATIENT
  Age: 1 Day
  Sex: Female
  Weight: 2.79 kg

DRUGS (2)
  1. GLUCOPHAGE [Suspect]
     Indication: DIABETES MELLITUS INADEQUATE CONTROL
     Route: 064
     Dates: start: 2012, end: 20130404
  2. AMAREL [Suspect]
     Indication: DIABETES MELLITUS INADEQUATE CONTROL
     Dosage: POTENCY 2MG
     Route: 064
     Dates: start: 2012, end: 20130404

REACTIONS (3)
  - Heart disease congenital [Not Recovered/Not Resolved]
  - Talipes [Not Recovered/Not Resolved]
  - Hemivertebra [Not Recovered/Not Resolved]
